FAERS Safety Report 5056929-7 (Version None)
Quarter: 2006Q2

REPORT INFORMATION
  Report Type: 
  Country: None (occurrence: None)
  Receive Date: 20060620
  Receipt Date: 20050425
  Transmission Date: 20061013
  Serious: Yes (Life-Threatening)
  Sender: FDA-Public Use
  Company Number: MK200504-0319-1

PATIENT
  Sex: Female

DRUGS (1)
  1. OPTIRAY 320 [Suspect]
     Indication: COMPUTERISED TOMOGRAM ABDOMEN
     Dosage: 50 ML,ONE TIME, IV
     Route: 042
     Dates: start: 20050422, end: 20050422

REACTIONS (3)
  - CONVULSION [None]
  - PRURITUS [None]
  - RASH [None]
